FAERS Safety Report 7496298-6 (Version None)
Quarter: 2011Q2

REPORT INFORMATION
  Report Type: 
  Country: None (occurrence: None)
  Receive Date: 20110523
  Receipt Date: 20110517
  Transmission Date: 20111010
  Serious: Yes (Hospitalization, Other)
  Sender: FDA-Public Use
  Company Number: IT-PFIZER INC-2011105545

PATIENT
  Age: 26 Year
  Sex: Female

DRUGS (4)
  1. EFFEXOR XR [Suspect]
     Indication: DEPRESSION
     Dosage: 600 MG, 1X/DAY
     Route: 048
     Dates: start: 20110214, end: 20110214
  2. ZOLPIDEM [Suspect]
     Indication: DEPRESSION
     Dosage: 400 MG, 1X/DAY
     Route: 048
     Dates: start: 20110214, end: 20110214
  3. MIRTAZAPINE [Suspect]
     Indication: DEPRESSION
     Dosage: 1350 MG, 1X/DAY
     Route: 048
     Dates: start: 20110214, end: 20110214
  4. MINIAS [Suspect]
     Indication: DEPRESSION
     Dosage: 60 MG, 1X/DAY
     Route: 048
     Dates: start: 20110214, end: 20110214

REACTIONS (4)
  - SOPOR [None]
  - BLOOD AMYLASE INCREASED [None]
  - DRUG LEVEL INCREASED [None]
  - DRUG ABUSE [None]
